FAERS Safety Report 6843910-8 (Version None)
Quarter: 2010Q3

REPORT INFORMATION
  Report Type: 
  Country: None (occurrence: None)
  Receive Date: 20100715
  Receipt Date: 20100708
  Transmission Date: 20110219
  Serious: Yes (Hospitalization, Other)
  Sender: FDA-Public Use
  Company Number: US-ELI_LILLY_AND_COMPANY-US201006004699

PATIENT
  Sex: Female
  Weight: 114.29 kg

DRUGS (8)
  1. BYETTA [Suspect]
     Indication: TYPE 2 DIABETES MELLITUS
     Dosage: 5 UG, 3/D
     Route: 058
     Dates: start: 20070101, end: 20100616
  2. LANTUS [Concomitant]
  3. SYNTHROID [Concomitant]
  4. GLIPIZIDE [Concomitant]
  5. NSAID'S [Concomitant]
  6. ACE INHIBITORS [Concomitant]
  7. DIURETICS [Concomitant]
  8. STATIN /00084401/ [Concomitant]

REACTIONS (4)
  - DRUG DOSE OMISSION [None]
  - GASTROINTESTINAL DISORDER [None]
  - OFF LABEL USE [None]
  - PANCREATITIS [None]
